FAERS Safety Report 10648954 (Version 2)
Quarter: 2014Q4

REPORT INFORMATION
  Report Type: Report from Study
  Country: US (occurrence: US)
  Receive Date: 20141212
  Receipt Date: 20141212
  Transmission Date: 20150529
  Serious: Yes (Hospitalization)
  Sender: FDA-Public Use
  Company Number: US-ACTELION-A-NJ2014-108710

PATIENT
  Age: 55 Year
  Sex: Male

DRUGS (4)
  1. COUMADIN [Concomitant]
     Active Substance: WARFARIN SODIUM
  2. VENTAVIS [Suspect]
     Active Substance: ILOPROST
     Indication: PULMONARY ARTERIAL HYPERTENSION
     Dosage: 5 6-9 TIMES A DAY
     Route: 055
     Dates: start: 20140820
  3. ADCIRCA [Concomitant]
     Active Substance: TADALAFIL
  4. MACITENTAN [Suspect]
     Active Substance: MACITENTAN
     Indication: PULMONARY ARTERIAL HYPERTENSION
     Dosage: 10 MG, UNK
     Route: 048
     Dates: start: 20140408

REACTIONS (3)
  - Dyspnoea [Recovering/Resolving]
  - Genital swelling [Recovering/Resolving]
  - Fluid retention [Unknown]
